FAERS Safety Report 8240792-7 (Version None)
Quarter: 2012Q1

REPORT INFORMATION
  Report Type: 
  Country: None (occurrence: None)
  Receive Date: 20120328
  Receipt Date: 20120320
  Transmission Date: 20120608
  Serious: Yes (Other)
  Sender: FDA-Public Use
  Company Number: PHHY2012PT002616

PATIENT
  Sex: Female

DRUGS (3)
  1. RASILEZ [Suspect]
     Route: 064
  2. ATORVASTATIN [Concomitant]
     Route: 064
  3. INSULIN [Concomitant]
     Route: 064

REACTIONS (2)
  - PREMATURE BABY [None]
  - LOW BIRTH WEIGHT BABY [None]
